FAERS Safety Report 5317118-1 (Version None)
Quarter: 2007Q2

REPORT INFORMATION
  Report Type: 
  Country: None (occurrence: None)
  Receive Date: 20070504
  Receipt Date: 20070419
  Transmission Date: 20071010
  Serious: Yes (Death, Hospitalization)
  Sender: FDA-Public Use
  Company Number: CA-SHR-CA-2007-010110

PATIENT
  Age: 55 Year
  Sex: Male
  Weight: 72.2 kg

DRUGS (3)
  1. BETASERON [Suspect]
     Indication: SECONDARY PROGRESSIVE MULTIPLE SCLEROSIS
     Dosage: 8 MIU, EVERY 2D
     Route: 058
     Dates: start: 20000404, end: 20060228
  2. TEGRETOL [Concomitant]
     Dosage: 200 MG, 3X/DAY
     Route: 048
  3. XELODA [Concomitant]

REACTIONS (7)
  - BACK PAIN [None]
  - COLON CANCER METASTATIC [None]
  - CONSTIPATION [None]
  - FAECALURIA [None]
  - POLLAKIURIA [None]
  - SECONDARY PROGRESSIVE MULTIPLE SCLEROSIS [None]
  - URINE ODOUR ABNORMAL [None]
